FAERS Safety Report 12721982 (Version 2)
Quarter: 2016Q3

REPORT INFORMATION
  Report Type: Spontaneous
  Country: None (occurrence: US)
  Receive Date: 20160907
  Receipt Date: 20160913
  Transmission Date: 20161109
  Serious: No
  Sender: FDA-Public Use
  Company Number: US-MATRIXX INITIATIVES, INC.-1057129

PATIENT
  Age: 42 Year
  Sex: Female
  Weight: 62.73 kg

DRUGS (3)
  1. MULTIVITAMINS [Concomitant]
     Active Substance: VITAMINS
  2. BIOTIN SUPPLEMENT [Concomitant]
  3. ZICAM COLD REMEDY SWABS [Suspect]
     Active Substance: ZINC GLUCONATE
     Indication: NASOPHARYNGITIS
     Route: 045

REACTIONS (2)
  - Dysgeusia [None]
  - Anosmia [None]
